FAERS Safety Report 5398306-5 (Version None)
Quarter: 2007Q3

REPORT INFORMATION
  Report Type: 
  Country: None (occurrence: None)
  Receive Date: 20070724
  Receipt Date: 20070709
  Transmission Date: 20080115
  Serious: Yes (Hospitalization)
  Sender: FDA-Public Use
  Company Number: 2007000413

PATIENT
  Age: 75 Year
  Sex: Female
  Weight: 58.514 kg

DRUGS (1)
  1. ERLOTINIB  (TABLET) (ERLOTINIB HCL) [Suspect]
     Indication: NON-SMALL CELL LUNG CANCER
     Dosage: 150 MG (QD), ORAL
     Route: 048
     Dates: start: 20061213, end: 20070228

REACTIONS (14)
  - ACTIVATED PARTIAL THROMBOPLASTIN TIME PROLONGED [None]
  - BLOOD GLUCOSE INCREASED [None]
  - CELLULITIS [None]
  - CONVULSION [None]
  - ELECTROLYTE IMBALANCE [None]
  - HAEMOGLOBIN DECREASED [None]
  - HYPOCALCAEMIA [None]
  - HYPOKALAEMIA [None]
  - HYPOMAGNESAEMIA [None]
  - INTERNATIONAL NORMALISED RATIO INCREASED [None]
  - MUCOSAL DRYNESS [None]
  - ORAL INTAKE REDUCED [None]
  - PHLEBITIS [None]
  - TACHYCARDIA [None]
